FAERS Safety Report 6803108-6 (Version None)
Quarter: 2010Q2

REPORT INFORMATION
  Report Type: 
  Country: None (occurrence: None)
  Receive Date: 20100628
  Receipt Date: 20100617
  Transmission Date: 20101027
  Serious: Yes (Hospitalization)
  Sender: FDA-Public Use
  Company Number: A0833401A

PATIENT
  Sex: Male

DRUGS (8)
  1. AVANDIA [Suspect]
     Indication: DIABETES MELLITUS
     Dosage: 4MG PER DAY
     Route: 048
     Dates: start: 20040410, end: 20070606
  2. METFORMIN HCL [Concomitant]
     Dates: end: 20070601
  3. PROTONIX [Concomitant]
  4. VYTORIN [Concomitant]
  5. MICRONASE [Concomitant]
  6. AMIODARONE [Concomitant]
  7. ALLOPURINOL [Concomitant]
  8. TOPROL-XL [Concomitant]

REACTIONS (8)
  - ATRIAL FLUTTER [None]
  - CARDIAC DISORDER [None]
  - CARDIAC FAILURE CONGESTIVE [None]
  - CARDIOMYOPATHY [None]
  - CARDIOVASCULAR DISORDER [None]
  - MYOCARDIAL INFARCTION [None]
  - THROMBOSIS [None]
  - VENTRICULAR TACHYCARDIA [None]
